FAERS Safety Report 26212590 (Version 1)
Quarter: 2025Q4

REPORT INFORMATION
  Report Type: Spontaneous
  Country: CN (occurrence: CN)
  Receive Date: 20251230
  Receipt Date: 20251230
  Transmission Date: 20260117
  Serious: Yes (Other)
  Sender: ALEXION PHARMACEUTICALS
  Company Number: CN-AstraZeneca-CH-01015960A

PATIENT
  Age: 59 Year
  Sex: Female

DRUGS (1)
  1. TAGRISSO [Suspect]
     Active Substance: OSIMERTINIB
     Dosage: UNK
     Route: 065

REACTIONS (6)
  - Blindness transient [Unknown]
  - Decreased appetite [Unknown]
  - Ocular hyperaemia [Unknown]
  - Dry skin [Unknown]
  - Tongue dry [Unknown]
  - Eyelid skin dryness [Unknown]
